FAERS Safety Report 10419944 (Version 1)
Quarter: 2014Q2

REPORT INFORMATION
  Report Type: Spontaneous
  Country: US (occurrence: None)
  Receive Date: 20140618
  Receipt Date: 20140618
  Transmission Date: 20141212
  Serious: Yes (Hospitalization)
  Sender: FDA-Public Use
  Company Number: 088289

PATIENT
  Sex: 0

DRUGS (4)
  1. LACOSAMIDE [Suspect]
     Dosage: (UNKNOWN DOSE) THERAPY (TO UNKNOWN)
  2. KEPPRA [Concomitant]
  3. PARACETAMOL [Concomitant]
  4. IBUPROFEN [Concomitant]

REACTIONS (5)
  - Rash [None]
  - Fatigue [None]
  - Somnolence [None]
  - Hospitalisation [None]
  - Pallor [None]
